FAERS Safety Report 10666718 (Version 6)
Quarter: 2018Q1

REPORT INFORMATION
  Report Type: Report from Study
  Country: JP (occurrence: JP)
  Receive Date: 20141222
  Receipt Date: 20180126
  Transmission Date: 20180508
  Serious: Yes (Life-Threatening, Hospitalization)
  Sender: FDA-Public Use
  Company Number: JP-PFIZER INC-2014345650

PATIENT
  Age: 86 Year
  Sex: Male
  Weight: 46 kg

DRUGS (10)
  1. XALKORI [Suspect]
     Active Substance: CRIZOTINIB
     Indication: NON-SMALL CELL LUNG CANCER
     Dosage: 250 MG, 2X/DAY
     Route: 048
     Dates: start: 20141105, end: 20141113
  2. RINDERON V [Concomitant]
     Active Substance: BETAMETHASONE VALERATE
     Dosage: 3 MG, 1X/DAY
     Route: 048
     Dates: start: 20141105, end: 20141107
  3. URINORM [Concomitant]
     Active Substance: BENZBROMARONE
     Dosage: 25 MG, 1X/DAY
     Route: 048
     Dates: end: 20141225
  4. NORVASC [Concomitant]
     Active Substance: AMLODIPINE BESYLATE
     Dosage: 2.5 MG, 1X/DAY
     Route: 048
     Dates: end: 20141105
  5. RINDERON V [Concomitant]
     Active Substance: BETAMETHASONE VALERATE
     Dosage: 1 MG, 1X/DAY
     Route: 048
     Dates: start: 20141111, end: 20141113
  6. MAGLAX [Concomitant]
     Active Substance: MAGNESIUM OXIDE
     Dosage: 250 MG, 3X/DAY
     Route: 048
     Dates: end: 20141114
  7. RINDERON V [Concomitant]
     Active Substance: BETAMETHASONE VALERATE
     Dosage: 2 MG, 1X/DAY
     Route: 048
     Dates: start: 20141108, end: 20141110
  8. KYTRIL [Concomitant]
     Active Substance: GRANISETRON HYDROCHLORIDE
     Dosage: 1 MG, 1X/DAY
     Route: 048
     Dates: start: 20141105, end: 20141110
  9. FAMOTIDINE OD [Concomitant]
     Active Substance: FAMOTIDINE
     Dosage: 20 MG, 1X/DAY
     Route: 048
     Dates: start: 20141225
  10. ZYLORIC [Concomitant]
     Active Substance: ALLOPURINOL
     Dosage: 50 MG, 1X/DAY
     Route: 048
     Dates: end: 20141225

REACTIONS (3)
  - Large intestine perforation [Recovered/Resolved]
  - Abdominal abscess [Recovered/Resolved]
  - Photophobia [Recovered/Resolved]

NARRATIVE: CASE EVENT DATE: 201411
